FAERS Safety Report 4636587-3 (Version None)
Quarter: 2005Q2

REPORT INFORMATION
  Report Type: 
  Country: None (occurrence: None)
  Receive Date: 20050325
  Receipt Date: 20041223
  Transmission Date: 20051028
  Serious: No
  Sender: FDA-Public Use
  Company Number: USA040465574

PATIENT
  Age: 71 Year
  Sex: Female
  Weight: 60 kg

DRUGS (8)
  1. FORTEO [Suspect]
     Indication: OSTEOPOROSIS
     Dosage: 20 UG/1 DAY
     Dates: start: 20040420
  2. EVISTA [Suspect]
     Indication: OSTEOPOROSIS
     Dosage: 60 MG DAY
     Dates: start: 20020101, end: 20040301
  3. SYNTHROID [Concomitant]
  4. CALCIUM GLUCONATE [Concomitant]
  5. LIPITOR [Concomitant]
  6. TYLENOL [Concomitant]
  7. FOSAMAX [Concomitant]
  8. CITRACAL + D [Concomitant]

REACTIONS (12)
  - ASTHENIA [None]
  - BREAST MASS [None]
  - BREAST MICROCALCIFICATION [None]
  - DIZZINESS [None]
  - FEELING ABNORMAL [None]
  - GASTROINTESTINAL DISORDER [None]
  - INJECTION SITE DISCOLOURATION [None]
  - INJECTION SITE HAEMORRHAGE [None]
  - INJECTION SITE HYPERSENSITIVITY [None]
  - INJECTION SITE IRRITATION [None]
  - MUSCLE SPASMS [None]
  - TREMOR [None]
